FAERS Safety Report 5129229-4 (Version None)
Quarter: 2006Q4

REPORT INFORMATION
  Report Type: 
  Country: None (occurrence: None)
  Receive Date: 20061018
  Receipt Date: 20061006
  Transmission Date: 20070319
  Serious: Yes (Hospitalization, Other)
  Sender: FDA-Public Use
  Company Number: JP-JNJFOC-20060805161

PATIENT
  Sex: Female

DRUGS (13)
  1. RISPERDAL [Suspect]
     Route: 048
  2. RISPERDAL [Suspect]
     Route: 048
  3. RISPERDAL [Suspect]
     Route: 048
  4. RISPERDAL [Suspect]
     Route: 048
  5. RISPERDAL [Suspect]
     Indication: DELUSIONAL DISORDER, UNSPECIFIED TYPE
     Route: 048
  6. ONEALFA [Suspect]
     Indication: OSTEOPOROSIS
     Route: 048
  7. DIOVAN [Suspect]
     Indication: HYPERTENSION
     Route: 048
  8. NORVASC [Suspect]
     Indication: HYPERTENSION
     Route: 048
  9. FLUCAM [Suspect]
     Indication: RHEUMATOID ARTHRITIS
     Route: 048
  10. PAXIL [Suspect]
     Indication: PANIC DISORDER
     Route: 048
  11. AMOBAN [Concomitant]
     Indication: PANIC DISORDER
     Route: 048
  12. TAGAMET [Concomitant]
     Indication: GASTRITIS
     Route: 048
  13. GASTER D [Concomitant]
     Indication: GASTRITIS
     Route: 048

REACTIONS (16)
  - DECREASED APPETITE [None]
  - DELUSIONAL DISORDER, UNSPECIFIED TYPE [None]
  - DIZZINESS [None]
  - DRUG DOSE OMISSION [None]
  - FAECAL INCONTINENCE [None]
  - FALL [None]
  - HEPATITIS [None]
  - IMPAIRED SELF-CARE [None]
  - INAPPROPRIATE SCHEDULE OF DRUG ADMINISTRATION [None]
  - INJURY [None]
  - INSOMNIA [None]
  - LIVER DISORDER [None]
  - MUSCULAR WEAKNESS [None]
  - OEDEMA [None]
  - OVERDOSE [None]
  - TREATMENT NONCOMPLIANCE [None]
